FAERS Safety Report 6716874-5 (Version None)
Quarter: 2010Q2

REPORT INFORMATION
  Report Type: 
  Country: None (occurrence: None)
  Receive Date: 20100504
  Receipt Date: 20100416
  Transmission Date: 20101027
  Serious: Yes (Hospitalization)
  Sender: FDA-Public Use
  Company Number: 230938J10USA

PATIENT
  Age: 68 Year
  Sex: Female

DRUGS (4)
  1. REBIF [Suspect]
     Indication: MULTIPLE SCLEROSIS
     Dosage: 44 MCG, 3 IN 1 WK, SUBCUTANEOUS
     Route: 058
     Dates: start: 20090403
  2. UNSPECIFIED BLOOD PRESSURE MEDICINE (ALL OTHER THERAPEUTIC PRODUCTS) [Concomitant]
  3. UNSPECIFIED ANTIBIOTIC (ANTIBIOTICS) [Concomitant]
  4. SYNTHROID [Concomitant]

REACTIONS (6)
  - ANAEMIA [None]
  - CHILLS [None]
  - DEVICE DISLOCATION [None]
  - INJECTION SITE REACTION [None]
  - JOINT SWELLING [None]
  - PAIN [None]
